FAERS Safety Report 9235967 (Version 1)
Quarter: 2013Q1

REPORT INFORMATION
  Report Type: Spontaneous
  Country: US (occurrence: None)
  Receive Date: 20121031
  Receipt Date: 20121031
  Transmission Date: 20140127
  Serious: Yes (Other)
  Sender: FDA-Public Use
  Company Number: PHEH2012US011819

PATIENT
  Age: 61 Year
  Sex: Female

DRUGS (6)
  1. GILENYA [Suspect]
     Indication: MULTIPLE SCLEROSIS
     Route: 048
     Dates: start: 201109, end: 201203
  2. LEXAPRO (ESCITALOPRAM OXALATE) [Concomitant]
  3. WELLBUTRIN (BUPROPION HYDROBROMIDE ) [Concomitant]
  4. TIZANIDINE (TIZANIDINE) [Concomitant]
  5. ZETIA (EZETIMIBE) [Concomitant]
  6. TRAZODONE (TRAZODONE) [Concomitant]

REACTIONS (1)
  - Macular oedema [None]
